FAERS Safety Report 7656113-4 (Version None)
Quarter: 2011Q3

REPORT INFORMATION
  Report Type: 
  Country: None (occurrence: None)
  Receive Date: 20110801
  Receipt Date: 20110715
  Transmission Date: 20111222
  Serious: Yes (Hospitalization, Other)
  Sender: FDA-Public Use
  Company Number: AUR-APL-2011-04354

PATIENT
  Age: 58 Year
  Sex: Male

DRUGS (2)
  1. GABAPENTIN [Suspect]
     Indication: PAIN
     Dosage: 2700 MG (900 MG, 3 IN 1 D);
  2. KETAMINE HCL [Suspect]
     Indication: ANAESTHESIA
     Dosage: 100 MG, INTRAVENOUS
     Route: 042

REACTIONS (8)
  - PCO2 INCREASED [None]
  - CONVERSION DISORDER [None]
  - DEPRESSED LEVEL OF CONSCIOUSNESS [None]
  - INTERVERTEBRAL DISC DEGENERATION [None]
  - HOFFMANN'S SIGN [None]
  - SPINAL COLUMN STENOSIS [None]
  - DRUG INTERACTION [None]
  - HYPOAESTHESIA [None]
